FAERS Safety Report 25344251 (Version 1)
Quarter: 2025Q2

REPORT INFORMATION
  Report Type: Spontaneous
  Country: US (occurrence: None)
  Receive Date: 20250521
  Receipt Date: 20250521
  Transmission Date: 20250717
  Serious: Yes (Hospitalization, Other)
  Sender: FDA-CTU
  Company Number: None

PATIENT
  Age: 88 Year
  Sex: Female
  Weight: 91.8 kg

DRUGS (1)
  1. JARDIANCE [Suspect]
     Active Substance: EMPAGLIFLOZIN
     Indication: Cardiac failure
     Dosage: FREQUENCY : DAILY;?
     Route: 048
     Dates: start: 20240709, end: 20250510

REACTIONS (4)
  - Unresponsive to stimuli [None]
  - Euglycaemic diabetic ketoacidosis [None]
  - Urinary tract infection [None]
  - Bacteraemia [None]

NARRATIVE: CASE EVENT DATE: 20250510
